FAERS Safety Report 7885372-8 (Version None)
Quarter: 2011Q4

REPORT INFORMATION
  Report Type: 
  Country: None (occurrence: None)
  Receive Date: 20111102
  Receipt Date: 20111027
  Transmission Date: 20120403
  Serious: Yes (Other)
  Sender: FDA-Public Use
  Company Number: US-PFIZER INC-2011260098

PATIENT
  Sex: Female
  Weight: 61.224 kg

DRUGS (3)
  1. XANAX [Suspect]
     Indication: ANXIETY
     Dosage: 0.125 MG (0.25MG HALF A TABLET), AS NEEDED
  2. ACIPHEX [Concomitant]
     Indication: GASTROOESOPHAGEAL REFLUX DISEASE
     Dosage: UNK
  3. TYLENOL-500 [Concomitant]
     Dosage: UNK

REACTIONS (4)
  - FATIGUE [None]
  - VISUAL ACUITY REDUCED [None]
  - SINUS DISORDER [None]
  - SOMNOLENCE [None]
